FAERS Safety Report 8898015 (Version 1)
Quarter: 2012Q4

REPORT INFORMATION
  Report Type: 
  Country: US (occurrence: US)
  Receive Date: 20121108
  Receipt Date: 20121108
  Transmission Date: 20130627
  Serious: No
  Sender: FDA-Public Use
  Company Number: US-AMGEN-USASP2012033011

PATIENT
  Sex: Female

DRUGS (7)
  1. ENBREL [Suspect]
     Indication: PRODUCT USED FOR UNKNOWN INDICATION
     Dosage: 50 mg, qwk
  2. CYMBALTA [Concomitant]
     Dosage: 20 mg, UNK
  3. SOMA [Concomitant]
     Dosage: 250 mg, UNK
  4. TRAZODONE [Concomitant]
     Dosage: 150 mg, UNK
  5. FISH OIL [Concomitant]
     Dosage: UNK
  6. FLEXERIL                           /00428402/ [Concomitant]
     Dosage: 5 mg, UNK
  7. ESTROVEN [Concomitant]
     Dosage: UNK

REACTIONS (1)
  - Injection site bruising [Unknown]
